FAERS Safety Report 11618545 (Version 1)
Quarter: 2015Q4

REPORT INFORMATION
  Report Type: Spontaneous
  Country: US (occurrence: US)
  Receive Date: 20151012
  Receipt Date: 20151012
  Transmission Date: 20160304
  Serious: No
  Sender: FDA-Public Use
  Company Number: US-TEVA-560402USA

PATIENT
  Sex: Female

DRUGS (1)
  1. TRI-SPRINTEC [Suspect]
     Active Substance: ETHINYL ESTRADIOL\NORGESTIMATE
     Dosage: 0.180 MG/0.035 MG; 0.215 MG/0.035 MG; 0.250 MG/0.035 MG
     Route: 048

REACTIONS (2)
  - Adverse event [Unknown]
  - Pruritus [Unknown]

NARRATIVE: CASE EVENT DATE: 201504
